FAERS Safety Report 12411316 (Version 1)
Quarter: 2016Q2

REPORT INFORMATION
  Report Type: Other
  Country: JP (occurrence: JP)
  Receive Date: 20160527
  Receipt Date: 20160527
  Transmission Date: 20160815
  Serious: Yes (Disabling)
  Sender: FDA-Public Use
  Company Number: JP-GUERBET LLC-1052896

PATIENT
  Age: 33 Year
  Sex: Female

DRUGS (2)
  1. HISTOACRYL(ENBUCRILATE) [Concomitant]
     Route: 013
  2. LIPIODOL [Suspect]
     Active Substance: ETHIODIZED OIL
     Indication: THERAPEUTIC EMBOLISATION
     Route: 013

REACTIONS (1)
  - Skin necrosis [Recovered/Resolved]
